FAERS Safety Report 17447474 (Version 2)
Quarter: 2020Q2

REPORT INFORMATION
  Report Type: Spontaneous
  Country: FR (occurrence: FR)
  Receive Date: 20200221
  Receipt Date: 20200609
  Transmission Date: 20200713
  Serious: Yes (Disabling, Congenital Anomaly, Other)
  Sender: FDA-Public Use
  Company Number: NVSC2020FR042430

PATIENT
  Sex: Male
  Weight: 2.31 kg

DRUGS (7)
  1. URBANYL [Suspect]
     Active Substance: CLOBAZAM
     Indication: PRODUCT USED FOR UNKNOWN INDICATION
     Dosage: UNK
     Route: 064
  2. OXCARBAZEPINE. [Suspect]
     Active Substance: OXCARBAZEPINE
     Indication: FOETAL EXPOSURE DURING PREGNANCY
     Dosage: UNK
     Route: 064
  3. DEPAKINE CHRONO [Suspect]
     Active Substance: VALPROATE SODIUM
     Dosage: 2 G, QD
     Route: 064
  4. LAMOTRIGINE. [Suspect]
     Active Substance: LAMOTRIGINE
     Indication: FOETAL EXPOSURE DURING PREGNANCY
     Dosage: MATERNAL DOSE, UNK
     Route: 064
     Dates: start: 20060105
  5. DEPAKINE CHRONO [Suspect]
     Active Substance: VALPROATE SODIUM
     Indication: FOETAL EXPOSURE DURING PREGNANCY
     Dosage: MATERNAL DOSE, 2 MG QD
     Route: 064
  6. DEPAKINE CHRONO [Suspect]
     Active Substance: VALPROATE SODIUM
     Dosage: MATERNAL DOSE, 1 MG QD
     Route: 064
  7. DEPAKINE CHRONO [Suspect]
     Active Substance: VALPROATE SODIUM
     Dosage: 1 G, QD
     Route: 064
     Dates: start: 20060105

REACTIONS (45)
  - Dysgraphia [Unknown]
  - Autism spectrum disorder [Unknown]
  - Joint effusion [Unknown]
  - Motor developmental delay [Unknown]
  - Logorrhoea [Unknown]
  - Nasal disorder [Unknown]
  - Congenital scoliosis [Unknown]
  - Disturbance in attention [Unknown]
  - Oropharyngeal discomfort [Unknown]
  - Disorientation [Unknown]
  - Clinodactyly [Unknown]
  - Overweight [Unknown]
  - Streptococcal infection [Unknown]
  - Developmental coordination disorder [Unknown]
  - Visual acuity reduced [Unknown]
  - Disturbance in social behaviour [Unknown]
  - Foot deformity [Unknown]
  - Congenital eyelid malformation [Unknown]
  - Hallucination, auditory [Unknown]
  - Ear disorder [Unknown]
  - Attention deficit hyperactivity disorder [Unknown]
  - Educational problem [Unknown]
  - Congenital musculoskeletal anomaly [Unknown]
  - Impulsive behaviour [Unknown]
  - Psychomotor hyperactivity [Unknown]
  - Bronchiolitis [Unknown]
  - Dysmorphism [Unknown]
  - Fine motor skill dysfunction [Unknown]
  - Intellectual disability [Unknown]
  - Hypogonadism male [Unknown]
  - Oropharyngeal pain [Unknown]
  - Agitation [Unknown]
  - Visual impairment [Unknown]
  - Bronchitis [Unknown]
  - Educational problem [Unknown]
  - Learning disorder [Unknown]
  - Speech disorder developmental [Unknown]
  - Balance disorder [Unknown]
  - Behaviour disorder [Unknown]
  - Ear infection [Unknown]
  - Hypertelorism of orbit [Unknown]
  - Congenital knee deformity [Unknown]
  - Body dysmorphic disorder [Unknown]
  - Foetal exposure during pregnancy [Unknown]
  - Affect lability [Unknown]

NARRATIVE: CASE EVENT DATE: 201509
